FAERS Safety Report 20485715 (Version 1)
Quarter: 2022Q1

REPORT INFORMATION
  Report Type: Spontaneous
  Country: US (occurrence: US)
  Receive Date: 20220217
  Receipt Date: 20220217
  Transmission Date: 20220423
  Serious: No
  Sender: FDA-Public Use
  Company Number: US-GW PHARMA-202202USGW00667

PATIENT
  Age: 42 Year
  Sex: Male

DRUGS (1)
  1. EPIDIOLEX [Suspect]
     Active Substance: CANNABIDIOL
     Indication: Tuberous sclerosis complex
     Dosage: 10 MILLIGRAM/KILOGRAM, QD
     Route: 048

REACTIONS (4)
  - Paranoia [Unknown]
  - Delusion [Unknown]
  - Condition aggravated [Unknown]
  - Weight decreased [Unknown]

NARRATIVE: CASE EVENT DATE: 20210101
